FAERS Safety Report 20955341 (Version 2)
Quarter: 2022Q2

REPORT INFORMATION
  Report Type: Report from Study
  Country: JP (occurrence: JP)
  Receive Date: 20220614
  Receipt Date: 20220621
  Transmission Date: 20220720
  Serious: Yes (Hospitalization)
  Sender: FDA-Public Use
  Company Number: JP-EXELIXIS-XL18422051662

PATIENT

DRUGS (22)
  1. CABOZANTINIB [Suspect]
     Active Substance: CABOZANTINIB
     Indication: Renal cell carcinoma
     Dosage: 60 MG, QD
     Route: 048
     Dates: start: 20211112, end: 20220117
  2. CABOZANTINIB [Suspect]
     Active Substance: CABOZANTINIB
     Dosage: 40 MG
     Route: 048
     Dates: end: 20220316
  3. CABOZANTINIB [Suspect]
     Active Substance: CABOZANTINIB
     Dosage: 20 MG
     Route: 048
  4. ATEZOLIZUMAB [Suspect]
     Active Substance: ATEZOLIZUMAB
     Indication: Renal cell carcinoma
     Dosage: 1200 MG, Q3WEEKS
     Route: 041
     Dates: start: 20211112
  5. PIOGLITAZONE [Concomitant]
     Active Substance: PIOGLITAZONE
     Dosage: 30 MG, QD
     Route: 048
     Dates: start: 20101204
  6. CORTRIL [Concomitant]
     Active Substance: HYDROCORTISONE
     Dosage: 10 MG, BID
     Route: 048
     Dates: start: 20210804
  7. VESICARE [Concomitant]
     Active Substance: SOLIFENACIN SUCCINATE
     Dosage: 5 MG, QD
     Route: 048
     Dates: start: 20210804
  8. SENNOSIDES [Concomitant]
     Active Substance: SENNOSIDES
     Dosage: 12 MG, 1 IN 1 AS REQUIRED
     Route: 048
     Dates: start: 20110105
  9. CLOBETASOL [Concomitant]
     Active Substance: CLOBETASOL
     Dosage: 0.05%, 1 IN 1 AS REQUIRED
     Route: 061
     Dates: start: 20211128
  10. HEPARINOID [Concomitant]
     Dosage: 0.3%, 1 IN 1 AS REQUIRED
     Route: 061
     Dates: start: 20211128
  11. LOXOPROFEN [Concomitant]
     Active Substance: LOXOPROFEN
     Dosage: 60 MG, 1 IN 1 AS REQUIRED
     Route: 048
     Dates: start: 20211213, end: 20220402
  12. REBAMIPIDE [Concomitant]
     Active Substance: REBAMIPIDE
     Dosage: 100 MG, 1 IN 1 AS REQUIRED
     Route: 048
     Dates: start: 20211213
  13. REBAMIPIDE [Concomitant]
     Active Substance: REBAMIPIDE
     Dosage: 100 MG, BID
     Route: 048
     Dates: start: 20220420
  14. Prostandin [Concomitant]
     Dosage: 0.003%, 1 IN 1 AS REQUIRED
     Route: 061
     Dates: start: 20211227
  15. MAGNESIUM OXIDE [Concomitant]
     Active Substance: MAGNESIUM OXIDE
     Dosage: 500 MG, 1 IN 1 AS REQUIRED
     Route: 048
     Dates: start: 20110105
  16. AMLODIPINE [Concomitant]
     Active Substance: AMLODIPINE BESYLATE
     Dosage: 10 MG, QD
     Route: 048
     Dates: start: 20220208
  17. LEVOTHYROXINE SODIUM [Concomitant]
     Active Substance: LEVOTHYROXINE SODIUM
     Dosage: 50 UG, QD
     Route: 048
     Dates: start: 20220301
  18. CALONAL [Concomitant]
     Active Substance: ACETAMINOPHEN
     Dosage: 500 MG, 1 IN 1 AS REQUIRED
     Route: 048
     Dates: start: 20220306
  19. NEXIUM [Concomitant]
     Active Substance: ESOMEPRAZOLE MAGNESIUM
     Dosage: 20 MG, 1 IN 1 AS REQUIRED
     Route: 048
     Dates: start: 20220323, end: 20220402
  20. NEXIUM [Concomitant]
     Active Substance: ESOMEPRAZOLE MAGNESIUM
     Dosage: 20 MG, 1 IN 1 AS REQUIRED
     Route: 048
     Dates: start: 20220420
  21. SPIKEVAX [Concomitant]
     Active Substance: ELASOMERAN
     Dosage: UNK
  22. MODERNA COVID-19 VACCINE [Concomitant]
     Active Substance: ELASOMERAN
     Dosage: UNK
     Dates: start: 20220319

REACTIONS (1)
  - Malignant pleural effusion [Recovering/Resolving]

NARRATIVE: CASE EVENT DATE: 20220501
